FAERS Safety Report 9474137 (Version 1)
Quarter: 2013Q3

REPORT INFORMATION
  Report Type: Report from Study
  Country: CA (occurrence: CA)
  Receive Date: 20130823
  Receipt Date: 20130823
  Transmission Date: 20140515
  Serious: Yes (Other)
  Sender: FDA-Public Use
  Company Number: CA-JNJFOC-20130812617

PATIENT
  Age: 55 Year
  Sex: Male
  Weight: 97 kg

DRUGS (2)
  1. REMICADE [Suspect]
     Indication: ANKYLOSING SPONDYLITIS
     Dosage: TOTAL OF 11 INFUSIONS
     Route: 042
     Dates: start: 20120529, end: 20130814
  2. INSULIN [Concomitant]
     Route: 065
     Dates: start: 201306

REACTIONS (2)
  - Tremor [Recovered/Resolved]
  - Infusion related reaction [Recovered/Resolved]
